FAERS Safety Report 4473639-5 (Version None)
Quarter: 2004Q3

REPORT INFORMATION
  Report Type: 
  Country: None (occurrence: None)
  Receive Date: 20040907
  Receipt Date: 20040721
  Transmission Date: 20050211
  Serious: No
  Sender: FDA-Public Use
  Company Number: USA040773216

PATIENT
  Sex: Male

DRUGS (7)
  1. ALIMTA [Suspect]
     Indication: MESOTHELIOMA
     Dates: start: 20040701
  2. CISPLATIN [Concomitant]
  3. GEMZAR [Concomitant]
  4. CARBOPLATIN [Concomitant]
  5. DEXAMETHASONE [Concomitant]
  6. FOLIC ACID [Concomitant]
  7. VITAMIN B-12 [Concomitant]

REACTIONS (2)
  - MYALGIA [None]
  - RASH [None]
